FAERS Safety Report 4551103-2 (Version None)
Quarter: 2005Q1

REPORT INFORMATION
  Report Type: 
  Country: None (occurrence: None)
  Receive Date: 20050107
  Receipt Date: 20041116
  Transmission Date: 20050727
  Serious: Yes (Hospitalization)
  Sender: FDA-Public Use
  Company Number: AE2004-0108

PATIENT
  Age: 73 Year
  Sex: Male

DRUGS (4)
  1. MUCINEX DM (GUAIFENESIN/DEXTROMETHORPAN HBR) [Suspect]
     Indication: RESPIRATORY TRACT CONGESTION
     Dosage: MG B.I.D. ORAL
     Route: 048
     Dates: start: 20041118, end: 20041118
  2. NEXIUM [Concomitant]
  3. ZOCOR [Concomitant]
  4. ASPIRIN [Concomitant]

REACTIONS (5)
  - ABNORMAL BEHAVIOUR [None]
  - CEREBROVASCULAR ACCIDENT [None]
  - CONVULSION [None]
  - DYSPHAGIA [None]
  - HEART RATE INCREASED [None]
